FAERS Safety Report 8021322-1 (Version None)
Quarter: 2012Q1

REPORT INFORMATION
  Report Type: 
  Country: None (occurrence: None)
  Receive Date: 20120104
  Receipt Date: 20111227
  Transmission Date: 20120608
  Serious: Yes (Hospitalization)
  Sender: FDA-Public Use
  Company Number: US-BAYER-2011-087367

PATIENT
  Age: 32 Year
  Sex: Female
  Weight: 53 kg

DRUGS (5)
  1. YASMIN [Suspect]
     Indication: ACNE
     Dosage: UNK
     Dates: start: 20070101, end: 20090701
  2. DROSPIRENONE AND ETHINYL ESTRADIOL [Suspect]
     Indication: UNEVALUABLE EVENT
  3. DROSPIRENONE AND ETHINYL ESTRADIOL [Suspect]
     Indication: ACNE
     Dosage: UNK
     Dates: start: 20070101, end: 20090701
  4. SYNTHROID [Concomitant]
     Indication: HYPOTHYROIDISM
     Dosage: UNK
     Dates: start: 20080101
  5. YASMIN [Suspect]
     Indication: UNEVALUABLE EVENT

REACTIONS (2)
  - DEEP VEIN THROMBOSIS [None]
  - PAIN [None]
